FAERS Safety Report 7584435-4 (Version None)
Quarter: 2011Q2

REPORT INFORMATION
  Report Type: 
  Country: None (occurrence: None)
  Receive Date: 20110630
  Receipt Date: 20110624
  Transmission Date: 20111010
  Serious: Yes (Hospitalization, Other)
  Sender: FDA-Public Use
  Company Number: JP-PFIZER INC-2011112954

PATIENT
  Age: 77 Year
  Sex: Male

DRUGS (16)
  1. CEFMETAZON [Suspect]
     Indication: SEPSIS
     Dosage: 1-2 G/DAY
     Route: 042
     Dates: start: 20110509, end: 20110517
  2. ALESION [Concomitant]
     Indication: RASH
     Dosage: 20 MG, 1X/DAY
     Route: 048
     Dates: start: 20110423, end: 20110512
  3. RABEPRAZOLE SODIUM [Suspect]
     Indication: PANCREATITIS ACUTE
     Dosage: 10 MG, 1X/DAY
     Route: 048
     Dates: start: 20110421, end: 20110512
  4. PREDNISOLONE [Concomitant]
     Indication: PROSTATE CANCER
     Dosage: 5 MG, 2X/DAY
     Route: 048
     Dates: start: 20110217, end: 20110405
  5. TAK-700 [Suspect]
     Indication: PROSTATE CANCER
     Dosage: 400 MG, 2X/DAY
     Route: 048
     Dates: start: 20110217, end: 20110405
  6. LEUPROLIDE ACETATE [Concomitant]
     Indication: PROSTATE CANCER
     Dosage: 3.75 MG, 1 IN 4 WEEKS
     Route: 058
     Dates: start: 20090213
  7. ACETAMINOPHEN [Concomitant]
     Indication: PANCREATITIS ACUTE
     Dosage: AS REQUIRED
     Route: 048
     Dates: start: 20110423, end: 20110507
  8. LOXONIN [Suspect]
     Indication: PANCREATITIS ACUTE
     Dosage: AS REQUIRED
     Route: 048
     Dates: start: 20110417, end: 20110420
  9. GLUCONSAN K [Concomitant]
     Indication: PANCREATITIS ACUTE
     Dosage: 1 G, 3X/DAY
     Route: 048
     Dates: start: 20110506, end: 20110508
  10. GLUCONSAN K [Concomitant]
     Indication: HYPOKALAEMIA
  11. FUTHAN [Concomitant]
     Indication: PANCREATITIS ACUTE
     Dosage: 1-2/DAY
     Route: 042
     Dates: start: 20110408, end: 20110425
  12. NAFTOPIDIL [Concomitant]
     Indication: BENIGN PROSTATIC HYPERPLASIA
     Dosage: 50 MG, 1X/DAY
     Route: 048
     Dates: start: 20110205, end: 20110406
  13. LANSOPRAZOLE [Suspect]
     Indication: PANCREATITIS ACUTE
     Dosage: 30 MG, 1-2/DAY
     Route: 042
     Dates: start: 20110408, end: 20110419
  14. MUCOSTA [Concomitant]
     Indication: GASTRITIS
     Dosage: 100 MG, 3X/DAY
     Route: 048
     Dates: start: 20110404, end: 20110408
  15. CEFOPERAZONE SODIUM [Suspect]
     Indication: PANCREATITIS ACUTE
     Dosage: 1-2/DAY
     Route: 042
     Dates: start: 20110408, end: 20110419
  16. FLOMAX [Concomitant]
     Indication: SEPSIS
     Dosage: 100 MG, 3X/DAY
     Route: 048
     Dates: start: 20110518, end: 20110527

REACTIONS (1)
  - INTERSTITIAL LUNG DISEASE [None]
